FAERS Safety Report 6288264-3 (Version None)
Quarter: 2009Q3

REPORT INFORMATION
  Report Type: 
  Country: None (occurrence: None)
  Receive Date: 20090729
  Receipt Date: 20090716
  Transmission Date: 20100115
  Serious: Yes (Death)
  Sender: FDA-Public Use
  Company Number: US-PFIZER INC-2009232671

PATIENT
  Sex: Male
  Weight: 52.154 kg

DRUGS (4)
  1. VFEND [Suspect]
     Indication: FUNGAL INFECTION
     Dosage: 200 MG, 2X/DAY
     Dates: start: 20080101, end: 20090616
  2. VICODIN [Concomitant]
     Dosage: UNK
  3. SPIRIVA [Concomitant]
     Dosage: UNK
  4. MORPHINE [Concomitant]
     Dosage: UNK

REACTIONS (1)
  - PNEUMONIA [None]
